FAERS Safety Report 8546740-4 (Version None)
Quarter: 2012Q3

REPORT INFORMATION
  Report Type: 
  Country: None (occurrence: None)
  Receive Date: 20120727
  Receipt Date: 20120210
  Transmission Date: 20120928
  Serious: No
  Sender: FDA-Public Use
  Company Number: US-ASTRAZENECA-2012SE07231

PATIENT
  Age: 71 Year
  Sex: Female
  Weight: 70.3 kg

DRUGS (3)
  1. SEROQUEL [Suspect]
     Indication: BIPOLAR I DISORDER
     Route: 048
  2. LITHIUM CARBONATE [Concomitant]
     Indication: BIPOLAR DISORDER
  3. TRAZEDONE [Concomitant]
     Indication: SLEEP DISORDER

REACTIONS (3)
  - MOOD SWINGS [None]
  - INSOMNIA [None]
  - DRUG DOSE OMISSION [None]
